FAERS Safety Report 12451385 (Version 1)
Quarter: 2016Q2

REPORT INFORMATION
  Report Type: Spontaneous
  Country: US (occurrence: None)
  Receive Date: 20160608
  Receipt Date: 20160608
  Transmission Date: 20160815
  Serious: Yes (Other)
  Sender: FDA-Public Use
  Company Number: None

PATIENT
  Sex: Female

DRUGS (1)
  1. BEXAROTENE. [Suspect]
     Active Substance: BEXAROTENE
     Indication: HYPOTHYROIDISM
     Dosage: 3-75MG CAPSULES  ONCE DAILY BY MOUTH
     Route: 048
     Dates: start: 201604

REACTIONS (2)
  - Cardiac murmur [None]
  - Blood cholesterol increased [None]
